FAERS Safety Report 7638236-9 (Version None)
Quarter: 2011Q3

REPORT INFORMATION
  Report Type: 
  Country: None (occurrence: None)
  Receive Date: 20110727
  Receipt Date: 20110721
  Transmission Date: 20111222
  Serious: Yes (Other)
  Sender: FDA-Public Use
  Company Number: US-PFIZER INC-2011166043

PATIENT
  Sex: Female

DRUGS (2)
  1. PREPARATION H HEMORRHOIDAL SUPPOSITORIES [Suspect]
     Indication: HAEMORRHOIDS
     Dosage: UNK
     Dates: start: 20110101
  2. PREPARATION H MAXIMUM STRENGTH [Suspect]
     Indication: HAEMORRHOIDS
     Dosage: UNK
     Dates: end: 20110101

REACTIONS (2)
  - RECTAL HAEMORRHAGE [None]
  - DRUG INEFFECTIVE [None]
